FAERS Safety Report 5158304-3 (Version None)
Quarter: 2006Q4

REPORT INFORMATION
  Report Type: 
  Country: None (occurrence: None)
  Receive Date: 20061117
  Receipt Date: 20061102
  Transmission Date: 20070319
  Serious: Yes (Other)
  Sender: FDA-Public Use
  Company Number: 15120

PATIENT
  Age: 75 Year
  Sex: Male

DRUGS (2)
  1. PAMIDRONATE DISODIUM [Suspect]
     Indication: OSTEOPOROSIS
     Dosage: 60 MG IV
     Route: 042
     Dates: start: 20051103, end: 20051103
  2. DIGOXIN [Concomitant]

REACTIONS (1)
  - PHLEBITIS [None]
